FAERS Safety Report 16279794 (Version 1)
Quarter: 2019Q2

REPORT INFORMATION
  Report Type: Spontaneous
  Country: TW (occurrence: TW)
  Receive Date: 20190507
  Receipt Date: 20190507
  Transmission Date: 20190711
  Serious: Yes (Hospitalization, Other)
  Sender: FDA-Public Use
  Company Number: TW-SUN PHARMACEUTICAL INDUSTRIES LTD-2019RR-207126

PATIENT
  Age: 21 Year
  Sex: Female

DRUGS (2)
  1. METFORMIN [Suspect]
     Active Substance: METFORMIN HYDROCHLORIDE
     Indication: POLYCYSTIC OVARIES
     Dosage: 250 MILLIGRAM, DAILY
     Route: 065
  2. DROSPIRENONE [Suspect]
     Active Substance: DROSPIRENONE
     Indication: POLYCYSTIC OVARIES
     Dosage: 3 MILLIGRAM, DAILY
     Route: 065

REACTIONS (2)
  - Treatment noncompliance [Recovered/Resolved]
  - Psychotic symptom [Recovered/Resolved]
